FAERS Safety Report 13621847 (Version 1)
Quarter: 2017Q2

REPORT INFORMATION
  Report Type: Spontaneous
  Country: US (occurrence: US)
  Receive Date: 20170607
  Receipt Date: 20170607
  Transmission Date: 20170830
  Serious: No
  Sender: FDA-Public Use
  Company Number: US-ROCHE-1785030

PATIENT
  Sex: Male

DRUGS (1)
  1. XELODA [Suspect]
     Active Substance: CAPECITABINE
     Indication: COLON CANCER
     Dosage: TAKE 4 TABS PO 2X A DAY ON DAYS 1-14 EVERY 21 DAYS
     Route: 048
     Dates: start: 20160621

REACTIONS (2)
  - Drug ineffective [Unknown]
  - Burning sensation [Not Recovered/Not Resolved]
